FAERS Safety Report 8194415-6 (Version None)
Quarter: 2012Q1

REPORT INFORMATION
  Report Type: 
  Country: None (occurrence: None)
  Receive Date: 20120308
  Receipt Date: 20120307
  Transmission Date: 20120608
  Serious: Yes (Other)
  Sender: FDA-Public Use
  Company Number: US-PFIZER INC-2012061284

PATIENT
  Sex: Male

DRUGS (1)
  1. LIPITOR [Suspect]
     Dosage: UNK

REACTIONS (3)
  - CARDIAC PACEMAKER INSERTION [None]
  - SURGERY [None]
  - TRANSIENT ISCHAEMIC ATTACK [None]
